FAERS Safety Report 9578411 (Version 2)
Quarter: 2013Q4

REPORT INFORMATION
  Report Type: Spontaneous
  Country: US (occurrence: US)
  Receive Date: 20131001
  Receipt Date: 20131001
  Transmission Date: 20140711
  Serious: No
  Sender: FDA-Public Use
  Company Number: US-AMGEN-USASP2013004408

PATIENT
  Age: 41 Year
  Sex: Female
  Weight: 43.99 kg

DRUGS (6)
  1. ENBREL [Suspect]
     Indication: RHEUMATOID ARTHRITIS
     Dosage: 50 MG, Q3WK
     Route: 058
     Dates: start: 20121019
  2. ZOFRAN                             /00955302/ [Concomitant]
     Dosage: 4 MG, 1 EVEY 4-6 HOURS AS NEEDED FOR NAUSEA
     Route: 048
     Dates: start: 20121110
  3. ACETAMINOPHEN [Concomitant]
     Dosage: 2 PILLS, TID
     Route: 048
  4. PROMETHAZINE HCL [Concomitant]
     Dosage: 1 TABLET EVERY 4-6 HOURS AS NEEDED
     Route: 048
  5. FISH OIL [Concomitant]
     Dosage: 1000 MG, 1 CAPSULE DAILY WITH MEAL
     Route: 048
  6. GLUCOSAMINE COMPLEX                /01555401/ [Concomitant]
     Dosage: 1 CAPSULE DAILY
     Route: 048

REACTIONS (11)
  - Headache [Not Recovered/Not Resolved]
  - Increased tendency to bruise [Not Recovered/Not Resolved]
  - Dry eye [Recovering/Resolving]
  - Pruritus [Recovering/Resolving]
  - Adverse event [Unknown]
  - Diarrhoea [Unknown]
  - Nausea [Unknown]
  - Migraine [Unknown]
  - Dysuria [Unknown]
  - Injection site bruising [Not Recovered/Not Resolved]
  - Injection site pruritus [Not Recovered/Not Resolved]
